FAERS Safety Report 9525871 (Version 1)
Quarter: 2013Q1

REPORT INFORMATION
  Report Type: Spontaneous
  Country: US (occurrence: None)
  Receive Date: 20130314
  Receipt Date: 20130314
  Transmission Date: 20140127
  Serious: Yes (Disabling, Other)
  Sender: FDA-Public Use
  Company Number: 1210USA000201

PATIENT
  Age: 59 Year
  Sex: Male
  Weight: 76.2 kg

DRUGS (3)
  1. EMEND [Suspect]
     Indication: PROPHYLAXIS OF NAUSEA AND VOMITING
     Dosage: 150 MG, ONCE, INTRAVENOUS
     Route: 042
     Dates: start: 20120926
  2. EMEND [Suspect]
     Indication: NAUSEA
     Dosage: 150 MG, ONCE, INTRAVENOUS
     Route: 042
     Dates: start: 20120926
  3. EMEND [Suspect]
     Indication: VOMITING
     Dosage: 150 MG, ONCE, INTRAVENOUS
     Route: 042
     Dates: start: 20120926

REACTIONS (6)
  - Tachycardia [None]
  - Hypersensitivity [None]
  - Erythema [None]
  - Rash [None]
  - Dyspnoea [None]
  - Hypertension [None]
